FAERS Safety Report 9972163 (Version 1)
Quarter: 2014Q1

REPORT INFORMATION
  Report Type: Report from Study
  Country: US (occurrence: US)
  Receive Date: 20140306
  Receipt Date: 20140306
  Transmission Date: 20141002
  Serious: No
  Sender: FDA-Public Use
  Company Number: US-ABBVIE-13P-163-1153262-00

PATIENT
  Age: 51 Year
  Sex: Female

DRUGS (2)
  1. HUMIRA [Suspect]
     Indication: PRODUCT USED FOR UNKNOWN INDICATION
     Dosage: LOADING DOSE
     Route: 058
     Dates: start: 20130917, end: 20130917
  2. HUMIRA [Suspect]
     Route: 058

REACTIONS (3)
  - Influenza like illness [Unknown]
  - Headache [Unknown]
  - Muscle spasms [Unknown]
